FAERS Safety Report 7542761-9 (Version None)
Quarter: 2011Q2

REPORT INFORMATION
  Report Type: 
  Country: None (occurrence: None)
  Receive Date: 20110606
  Receipt Date: 20110531
  Transmission Date: 20111010
  Serious: Yes (Other)
  Sender: FDA-Public Use
  Company Number: 1000020871

PATIENT
  Age: 43 Year
  Sex: Male
  Weight: 178.2 kg

DRUGS (13)
  1. SIMVASTATIN [Concomitant]
  2. PHENTERMINE [Suspect]
     Dosage: 75 MG (37.5 MG, 2 IN 1 D)
     Dates: start: 20110201
  3. ASPIRIN [Concomitant]
  4. MVI (MVI) (MVI) [Concomitant]
  5. BYSTOLIC [Suspect]
     Indication: HYPERTENSION
     Dosage: 10 MG (10 MG, 1 IN 1 D)
     Dates: start: 20110201
  6. CO-ENZYME Q10 (UBIDECARENONE) (UBIDECARENONE) [Concomitant]
  7. NORVASC [Suspect]
     Indication: HYPERTENSION
     Dosage: 10 MG (10 MG, 1 IN 1 D), ORAL
     Route: 048
     Dates: start: 20110201
  8. KELP (KELP) (KELP) [Concomitant]
  9. GARLIC [Concomitant]
  10. CINNAMON (CINNAMOMUN VERUM) (CINNAMOMUM VERUM) [Concomitant]
  11. HYDROCHLOROTHIAZIDE [Suspect]
     Indication: HYPERTENSION
     Dosage: 25 MG (25 MG, 1 IN 1 D)
     Dates: start: 20110201
  12. FISH OIL (FISH OIL) (FISH OIL) [Concomitant]
  13. IRON (IRON) (IRON) [Concomitant]

REACTIONS (11)
  - BLINDNESS UNILATERAL [None]
  - WEIGHT INCREASED [None]
  - CONDITION AGGRAVATED [None]
  - ERYTHEMA [None]
  - OEDEMA PERIPHERAL [None]
  - LIMB INJURY [None]
  - BLOOD PRESSURE INADEQUATELY CONTROLLED [None]
  - CATARACT [None]
  - PAIN IN EXTREMITY [None]
  - WHITE BLOOD CELL COUNT INCREASED [None]
  - GOUT [None]
